FAERS Safety Report 8485477-7 (Version None)
Quarter: 2012Q3

REPORT INFORMATION
  Report Type: 
  Country: None (occurrence: None)
  Receive Date: 20120703
  Receipt Date: 20120621
  Transmission Date: 20120928
  Serious: Yes (Other)
  Sender: FDA-Public Use
  Company Number: US-MYLANLABS-2012S1013014

PATIENT
  Age: 72 Year
  Sex: Female

DRUGS (2)
  1. AMIODARONE HYDROCHLORIDE [Suspect]
     Indication: TACHYARRHYTHMIA
     Route: 065
  2. ATORVASTATIN [Suspect]
     Route: 065

REACTIONS (1)
  - NEUROMYOPATHY [None]
